FAERS Safety Report 4715164-X (Version None)
Quarter: 2005Q3

REPORT INFORMATION
  Report Type: 
  Country: None (occurrence: None)
  Receive Date: 20050715
  Receipt Date: 20050711
  Transmission Date: 20060218
  Serious: Yes (Other)
  Sender: FDA-Public Use
  Company Number: GBWYE749616JUN05

PATIENT
  Sex: Female

DRUGS (6)
  1. LAMOTRIGINE [Suspect]
     Route: 065
     Dates: start: 20050519, end: 20050601
  2. EFFEXOR [Suspect]
     Indication: DEPRESSION
     Dosage: 375MG PER DAY
     Route: 048
     Dates: start: 20020301
  3. SEMISODIUM VALPROATE [Suspect]
     Dosage: 750MG PER DAY
     Route: 065
     Dates: start: 20050518
  4. ZUCLOPENTHIXOL DECANOATE [Concomitant]
     Route: 042
  5. SULPIRIDE [Concomitant]
     Dosage: 600MG PER DAY
     Route: 065
  6. DEPAKOTE [Concomitant]

REACTIONS (2)
  - CONDITION AGGRAVATED [None]
  - TARDIVE DYSKINESIA [None]
